FAERS Safety Report 4538405-0 (Version None)
Quarter: 2004Q4

REPORT INFORMATION
  Report Type: 
  Country: None (occurrence: None)
  Receive Date: 20041223
  Receipt Date: 20041223
  Transmission Date: 20050328
  Serious: Yes (Other)
  Sender: FDA-Public Use
  Company Number: None

PATIENT
  Age: 64 Year
  Sex: Female
  Weight: 76.2043 kg

DRUGS (17)
  1. REMICADE [Suspect]
     Indication: RHEUMATOID ARTHRITIS
     Dosage: 224 MG IV
     Route: 042
     Dates: start: 20040211
  2. REMICADE [Suspect]
     Indication: RHEUMATOID ARTHRITIS
     Dosage: 224 MG IV
     Route: 042
     Dates: start: 20040225
  3. REMICADE [Suspect]
     Indication: RHEUMATOID ARTHRITIS
     Dosage: 224 MG IV
     Route: 042
     Dates: start: 20040324
  4. NORVASC [Concomitant]
  5. METOPROLOL [Concomitant]
  6. DARVOCET [Concomitant]
  7. ASPIRIN [Concomitant]
  8. OSCAL [Concomitant]
  9. FEOSOL [Concomitant]
  10. MURAN [Concomitant]
  11. TRIAM/HCTZ [Concomitant]
  12. L-THYROXINE [Concomitant]
  13. LORAZEPAM [Concomitant]
  14. PLAQUENIL [Concomitant]
  15. PREDNISONE [Concomitant]
  16. FOLIC ACID [Concomitant]
  17. MULTIVITAMIN [Concomitant]

REACTIONS (2)
  - PITTING OEDEMA [None]
  - PYREXIA [None]
